FAERS Safety Report 7864432-1 (Version None)
Quarter: 2011Q4

REPORT INFORMATION
  Report Type: 
  Country: None (occurrence: None)
  Receive Date: 20111028
  Receipt Date: 20111025
  Transmission Date: 20120403
  Serious: Yes (Death)
  Sender: FDA-Public Use
  Company Number: PHHY2011US46132

PATIENT
  Sex: Female

DRUGS (2)
  1. EXJADE [Suspect]
     Indication: NEOPLASM
     Dosage: 1250 MG, QD
     Route: 048
     Dates: start: 20110521
  2. ANALGESICS [Concomitant]
     Indication: PAIN

REACTIONS (5)
  - DEATH [None]
  - MALAISE [None]
  - ABDOMINAL DISCOMFORT [None]
  - ABDOMINAL PAIN UPPER [None]
  - ASTHENIA [None]
